FAERS Safety Report 7593302-1 (Version None)
Quarter: 2011Q3

REPORT INFORMATION
  Report Type: 
  Country: None (occurrence: None)
  Receive Date: 20110706
  Receipt Date: 20110628
  Transmission Date: 20111222
  Serious: Yes (Hospitalization)
  Sender: FDA-Public Use
  Company Number: JP-TYCO HEALTHCARE/MALLINCKRODT-T201101313

PATIENT
  Sex: Female

DRUGS (1)
  1. METHADONE HCL [Suspect]
     Indication: CANCER PAIN
     Dosage: 25 MG TID
     Route: 048
     Dates: start: 20110202

REACTIONS (1)
  - FEBRILE NEUTROPENIA [None]
